FAERS Safety Report 9172340 (Version 1)
Quarter: 2013Q1

REPORT INFORMATION
  Report Type: Spontaneous
  Country: US (occurrence: US)
  Receive Date: 20130319
  Receipt Date: 20130319
  Transmission Date: 20140127
  Serious: No
  Sender: FDA-Public Use
  Company Number: US-ASTRAZENECA-2013SE14874

PATIENT
  Age: 74 Year
  Sex: Male
  Weight: 63.5 kg

DRUGS (5)
  1. CRESTOR [Suspect]
     Indication: BLOOD CHOLESTEROL
     Route: 048
  2. CRESTOR [Suspect]
     Indication: BLOOD CHOLESTEROL
     Route: 048
  3. VITAMINS [Concomitant]
  4. OCTUVITE [Concomitant]
     Indication: EYE DISORDER
  5. LIPITOR [Concomitant]

REACTIONS (2)
  - Weight decreased [Unknown]
  - Drug ineffective [Unknown]
